FAERS Safety Report 4348859-0 (Version None)
Quarter: 2004Q2

REPORT INFORMATION
  Report Type: 
  Country: None (occurrence: None)
  Receive Date: 20040423
  Receipt Date: 20040413
  Transmission Date: 20050107
  Serious: Yes (Hospitalization, Other)
  Sender: FDA-Public Use
  Company Number: 2004017491

PATIENT
  Age: 81 Year
  Sex: Female

DRUGS (2)
  1. LIPITOR [Suspect]
     Indication: HYPERCHOLESTEROLAEMIA
     Dosage: 20 MG (DAILY), ORAL
     Route: 048
     Dates: end: 20040311
  2. DILTIAZEM HYDROCHLORIDE [Concomitant]

REACTIONS (5)
  - BLOOD CREATINE PHOSPHOKINASE INCREASED [None]
  - DEEP VEIN THROMBOSIS [None]
  - MYOGLOBIN BLOOD INCREASED [None]
  - POLYMYOSITIS [None]
  - PULMONARY EMBOLISM [None]
